FAERS Safety Report 8531895-8 (Version None)
Quarter: 2012Q3

REPORT INFORMATION
  Report Type: 
  Country: None (occurrence: None)
  Receive Date: 20120723
  Receipt Date: 20120716
  Transmission Date: 20120928
  Serious: Yes (Other)
  Sender: FDA-Public Use
  Company Number: PHEH2012US013263

PATIENT
  Sex: Female

DRUGS (3)
  1. RECLAST [Suspect]
     Indication: OSTEOPOROSIS
     Dosage: UNK UKN, UNK
     Route: 042
     Dates: start: 20120501
  2. PREDNISONE [Suspect]
     Dosage: UNK UKN, UNK
     Route: 042
  3. CYPROHEPTADINE HCL [Concomitant]
     Dosage: 1 TABLET EVERY 8 HOURS

REACTIONS (8)
  - URTICARIA [None]
  - PRURITUS GENERALISED [None]
  - ERYTHEMA [None]
  - MALAISE [None]
  - HAEMORRHAGE [None]
  - SWELLING FACE [None]
  - CONFUSIONAL STATE [None]
  - FATIGUE [None]
